FAERS Safety Report 16969256 (Version 1)
Quarter: 2019Q4

REPORT INFORMATION
  Report Type: Other
  Country: KR (occurrence: KR)
  Receive Date: 20191029
  Receipt Date: 20191029
  Transmission Date: 20200122
  Serious: Yes (Hospitalization, Other)
  Sender: FDA-Public Use
  Company Number: KR-MLV PHARMA LLC-000002

PATIENT
  Age: 55 Year
  Sex: Male

DRUGS (18)
  1. ROPINIROLE. [Suspect]
     Active Substance: ROPINIROLE
     Indication: REHABILITATION THERAPY
  2. BROMOCRIPTINE MESYLATE [Suspect]
     Active Substance: BROMOCRIPTINE MESYLATE
     Indication: REHABILITATION THERAPY
     Dosage: INITIATED AT A LOW DOSAGE.
  3. CARBIDOPA/LEVODOPA [Suspect]
     Active Substance: CARBIDOPA\LEVODOPA
     Indication: REHABILITATION THERAPY
  4. ROPINIROLE. [Suspect]
     Active Substance: ROPINIROLE
     Indication: REHABILITATION THERAPY
     Dosage: INITIATED AT A LOW DOSAGE.
  5. VENLAFAXINE [Suspect]
     Active Substance: VENLAFAXINE HYDROCHLORIDE
     Indication: REHABILITATION THERAPY
  6. CARBIDOPA/LEVODOPA [Suspect]
     Active Substance: CARBIDOPA\LEVODOPA
     Indication: REHABILITATION THERAPY
     Dosage: 75/750 MG
  7. VENLAFAXINE [Suspect]
     Active Substance: VENLAFAXINE HYDROCHLORIDE
     Indication: REHABILITATION THERAPY
  8. BROMOCRIPTINE MESYLATE [Suspect]
     Active Substance: BROMOCRIPTINE MESYLATE
     Indication: REHABILITATION THERAPY
  9. TIANEPTINE SODIUM [Suspect]
     Active Substance: TIANEPTINE SODIUM
     Indication: REHABILITATION THERAPY
  10. BROMOCRIPTINE MESYLATE [Suspect]
     Active Substance: BROMOCRIPTINE MESYLATE
     Indication: REHABILITATION THERAPY
  11. METHYLPHENIDATE. [Suspect]
     Active Substance: METHYLPHENIDATE
     Indication: REHABILITATION THERAPY
  12. VENLAFAXINE [Suspect]
     Active Substance: VENLAFAXINE HYDROCHLORIDE
     Indication: REHABILITATION THERAPY
     Dosage: INITIATED AT A LOW DOSAGE.
  13. TIANEPTINE SODIUM [Suspect]
     Active Substance: TIANEPTINE SODIUM
     Indication: REHABILITATION THERAPY
     Dosage: INITIATED AT A LOW DOSAGE AND?GRADUALLY INCREASED.
  14. METHYLPHENIDATE. [Suspect]
     Active Substance: METHYLPHENIDATE
     Indication: REHABILITATION THERAPY
  15. ROPINIROLE. [Suspect]
     Active Substance: ROPINIROLE
     Indication: REHABILITATION THERAPY
  16. TIANEPTINE SODIUM [Suspect]
     Active Substance: TIANEPTINE SODIUM
     Indication: REHABILITATION THERAPY
     Dosage: INITIATED AT A LOW DOSAGE.
  17. CARBIDOPA/LEVODOPA [Suspect]
     Active Substance: CARBIDOPA\LEVODOPA
     Indication: REHABILITATION THERAPY
     Dosage: INITIATED AT A LOW DOSAGE.
  18. METHYLPHENIDATE. [Suspect]
     Active Substance: METHYLPHENIDATE
     Indication: REHABILITATION THERAPY
     Dosage: INITIATED AT A LOW DOSAGE.

REACTIONS (2)
  - Stress cardiomyopathy [Recovered/Resolved]
  - Serotonin syndrome [Recovered/Resolved]
